FAERS Safety Report 7484430-X (Version None)
Quarter: 2011Q2

REPORT INFORMATION
  Report Type: 
  Country: None (occurrence: None)
  Receive Date: 20110509
  Receipt Date: 20110421
  Transmission Date: 20111010
  Serious: Yes (Other)
  Sender: FDA-Public Use
  Company Number: 031915

PATIENT
  Age: 24 Month
  Sex: Female
  Weight: 11.3399 kg

DRUGS (7)
  1. GYNAZOLE [Concomitant]
  2. PRENATAL VITAMINS /01549301) [Concomitant]
  3. FISH OIL [Concomitant]
  4. FOLIC ACID [Concomitant]
  5. CALCIUM CARBONATE [Concomitant]
  6. TERAZOL 3 [Concomitant]
  7. KEPPRA [Suspect]
     Indication: EPILEPSY
     Dosage: (3000 MG  TRANSPLACENTAL)
     Route: 064

REACTIONS (4)
  - FALL [None]
  - TIBIA FRACTURE [None]
  - TORUS FRACTURE [None]
  - MATERNAL DRUGS AFFECTING FOETUS [None]
